FAERS Safety Report 17451359 (Version 6)
Quarter: 2020Q4

REPORT INFORMATION
  Report Type: Spontaneous
  Country: US (occurrence: US)
  Receive Date: 20200224
  Receipt Date: 20201020
  Transmission Date: 20210113
  Serious: Yes (Other)
  Sender: FDA-Public Use
  Company Number: US-PFIZER INC-2020079309

PATIENT
  Age: 68 Year
  Sex: Male

DRUGS (7)
  1. LYRICA [Suspect]
     Active Substance: PREGABALIN
     Indication: NEURITIS
     Dosage: 100 MG, DAILY (50 MG, 2 CAPSULES NIGHTLY 30 DAYS)
     Route: 048
  2. LAMOTRIGINE. [Concomitant]
     Active Substance: LAMOTRIGINE
     Dosage: 150 MG, 2X/DAY
  3. LYRICA [Suspect]
     Active Substance: PREGABALIN
     Indication: NEUROPATHY PERIPHERAL
  4. LYRICA [Suspect]
     Active Substance: PREGABALIN
     Indication: NEURALGIA
     Dosage: 50 MG, 2X/DAY
     Route: 048
  5. LYRICA [Suspect]
     Active Substance: PREGABALIN
     Indication: DIABETIC NEUROPATHY
  6. ACETAMINOPHEN W/OXYCODONE [Concomitant]
     Active Substance: ACETAMINOPHEN\OXYCODONE HYDROCHLORIDE
     Dosage: 5/325 PRN , AS NEEDED
  7. LISINOPRIL. [Concomitant]
     Active Substance: LISINOPRIL
     Dosage: 10 MG, 1X/DAY (10 MG QD )

REACTIONS (10)
  - Peroneal nerve palsy [Unknown]
  - Dizziness postural [Unknown]
  - Somnolence [Not Recovered/Not Resolved]
  - Muscular weakness [Unknown]
  - Fall [Unknown]
  - Fatigue [Unknown]
  - Seizure [Unknown]
  - Balance disorder [Unknown]
  - Memory impairment [Unknown]
  - Therapeutic product effect incomplete [Unknown]
